FAERS Safety Report 8027904-5 (Version None)
Quarter: 2012Q1

REPORT INFORMATION
  Report Type: 
  Country: None (occurrence: None)
  Receive Date: 20120106
  Receipt Date: 20120102
  Transmission Date: 20120608
  Serious: Yes (Death, Hospitalization, Other)
  Sender: FDA-Public Use
  Company Number: AR-AMGEN-ARGSP2011055178

PATIENT
  Age: 67 Year
  Sex: Female

DRUGS (5)
  1. DICLOFENAC [Concomitant]
     Dosage: UNK
  2. ALPLAX [Concomitant]
     Dosage: UNK
  3. LEVOTHYROXINE SODIUM [Concomitant]
     Dosage: UNK
  4. LOSARTAN POTASSIUM [Concomitant]
     Dosage: UNK
  5. ENBREL [Suspect]
     Indication: RHEUMATOID ARTHRITIS
     Dosage: 25 MG, WEEKLY
     Route: 058
     Dates: start: 20050804, end: 20111010

REACTIONS (6)
  - HEART RATE INCREASED [None]
  - PULMONARY OEDEMA [None]
  - BLOOD PRESSURE DECREASED [None]
  - URINARY TRACT INFECTION [None]
  - GENERAL PHYSICAL HEALTH DETERIORATION [None]
  - CARDIO-RESPIRATORY ARREST [None]
